FAERS Safety Report 23806719 (Version 1)
Quarter: 2024Q2

REPORT INFORMATION
  Report Type: Spontaneous
  Country: IT (occurrence: IT)
  Receive Date: 20240502
  Receipt Date: 20240502
  Transmission Date: 20240716
  Serious: Yes (Other)
  Sender: FDA-Public Use
  Company Number: IT-SANOFI-02005811

PATIENT
  Age: 52 Year
  Sex: Male

DRUGS (1)
  1. PRALUENT [Suspect]
     Active Substance: ALIROCUMAB
     Indication: Glycogen storage disease type II
     Dosage: UNK: 12 VIALS EVERY 7 DAYS
     Route: 058
     Dates: start: 202403

REACTIONS (4)
  - Hyperpyrexia [Recovered/Resolved]
  - Injection site bruising [Unknown]
  - Vomiting [Recovered/Resolved]
  - Product use in unapproved indication [Unknown]

NARRATIVE: CASE EVENT DATE: 20240301
